FAERS Safety Report 4463095-5 (Version None)
Quarter: 2004Q3

REPORT INFORMATION
  Report Type: 
  Country: None (occurrence: None)
  Receive Date: 20040928
  Receipt Date: 20040917
  Transmission Date: 20050211
  Serious: Yes (Other)
  Sender: FDA-Public Use
  Company Number: US013818

PATIENT
  Age: 4 Year
  Sex: Male
  Weight: 20.4119 kg

DRUGS (1)
  1. ACTIQ [Suspect]
     Dosage: 600 UG ONCE BUCCAL
     Route: 002
     Dates: start: 20040917, end: 20040917

REACTIONS (1)
  - ACCIDENTAL EXPOSURE [None]
